FAERS Safety Report 5417770-6 (Version None)
Quarter: 2007Q3

REPORT INFORMATION
  Report Type: 
  Country: None (occurrence: None)
  Receive Date: 20070817
  Receipt Date: 20070810
  Transmission Date: 20080115
  Serious: Yes (Other)
  Sender: FDA-Public Use
  Company Number: PHBS2007JP13373

PATIENT
  Age: 35 Year
  Sex: Female

DRUGS (2)
  1. RITALIN [Suspect]
     Dosage: 1000 MG, ONCE/SINGLE
  2. ACETAMINOPHEN [Suspect]
     Dosage: 180 DF, ONCE/SINGLE

REACTIONS (2)
  - NAUSEA [None]
  - OVERDOSE [None]
